FAERS Safety Report 25131998 (Version 1)
Quarter: 2025Q1

REPORT INFORMATION
  Report Type: Spontaneous
  Country: CN (occurrence: CN)
  Receive Date: 20250327
  Receipt Date: 20250327
  Transmission Date: 20250408
  Serious: Yes (Hospitalization)
  Sender: MERCK KGAA
  Company Number: CN-Merck Healthcare KGaA-2025014634

PATIENT
  Age: 26 Year
  Sex: Female
  Weight: 60 kg

DRUGS (2)
  1. EUTHYROX [Suspect]
     Active Substance: LEVOTHYROXINE SODIUM
     Indication: Emotional disorder
     Dosage: MORE THAN 20 TABLETS
     Route: 048
     Dates: start: 20250319, end: 20250319
  2. VITAMINA E [DL-ALPHA TOCOPHERYL ACETATE] [Concomitant]
     Indication: Emotional disorder
     Dosage: 30 TABLETS FOR 1 HOUR
     Route: 048
     Dates: start: 20250319, end: 20250319

REACTIONS (3)
  - Dizziness [Recovering/Resolving]
  - Hypoaesthesia [Recovering/Resolving]
  - Agitation [Recovering/Resolving]

NARRATIVE: CASE EVENT DATE: 20250319
